FAERS Safety Report 4966078-1 (Version None)
Quarter: 2006Q2

REPORT INFORMATION
  Report Type: 
  Country: None (occurrence: None)
  Receive Date: 20060407
  Receipt Date: 20060327
  Transmission Date: 20061013
  Serious: Yes (Other)
  Sender: FDA-Public Use
  Company Number: PHFR2006GB01273

PATIENT

DRUGS (1)
  1. AREDIA [Suspect]
     Route: 065

REACTIONS (2)
  - DEAFNESS [None]
  - TINNITUS [None]
